FAERS Safety Report 14508567 (Version 3)
Quarter: 2018Q2

REPORT INFORMATION
  Report Type: Report from Study
  Country: US (occurrence: US)
  Receive Date: 20180209
  Receipt Date: 20180402
  Transmission Date: 20180711
  Serious: No
  Sender: FDA-Public Use
  Company Number: US-AMGEN-USASL2018016837

PATIENT
  Sex: Female

DRUGS (2)
  1. ENBREL [Suspect]
     Active Substance: ETANERCEPT
     Indication: PSORIASIS
  2. ENBREL [Suspect]
     Active Substance: ETANERCEPT
     Indication: PSORIATIC ARTHROPATHY
     Dosage: 50 MG, 2 TIMES/WK
     Route: 065

REACTIONS (10)
  - Headache [Unknown]
  - Nasal congestion [Unknown]
  - Wrong technique in product usage process [Unknown]
  - Musculoskeletal stiffness [Not Recovered/Not Resolved]
  - Injection site pain [Unknown]
  - Abdominal pain upper [Unknown]
  - Insomnia [Unknown]
  - Drug ineffective [Unknown]
  - Injection site erythema [Unknown]
  - Injection site swelling [Unknown]
